FAERS Safety Report 6063351-3 (Version None)
Quarter: 2009Q1

REPORT INFORMATION
  Report Type: 
  Country: None (occurrence: None)
  Receive Date: 20090203
  Receipt Date: 20090128
  Transmission Date: 20090719
  Serious: Yes (Other)
  Sender: FDA-Public Use
  Company Number: US-GENENTECH-269662

PATIENT
  Sex: Female

DRUGS (8)
  1. XOLAIR [Suspect]
     Indication: ASTHMA
     Dosage: 2.4 ML, 1/MONTH
     Dates: start: 20071201
  2. SINGULAIR [Concomitant]
     Indication: ASTHMA
     Dosage: 10 MG, QD
  3. WELLBUTRIN XL [Concomitant]
     Indication: POSTPARTUM DEPRESSION
     Dosage: 300 MG, QD
     Dates: start: 20060501
  4. ZYRTEC [Concomitant]
     Indication: HYPERSENSITIVITY
     Dosage: 10 MG, QD
     Dates: start: 19980101
  5. ALLEGRA [Concomitant]
     Indication: HYPERSENSITIVITY
     Dosage: 180 MG, QD
     Dates: start: 20050101
  6. ZANTAC [Concomitant]
     Indication: GASTROOESOPHAGEAL REFLUX DISEASE
     Dosage: 150 MG, BID
     Dates: start: 20030701
  7. PAXIL [Concomitant]
     Indication: POSTPARTUM DEPRESSION
     Dosage: 20 MG, QD
     Dates: start: 20060801, end: 20080101
  8. XOPENEX [Suspect]
     Indication: ASTHMA
     Dosage: UNK
     Dates: start: 19990101

REACTIONS (2)
  - ABORTION SPONTANEOUS [None]
  - DRUG EXPOSURE DURING PREGNANCY [None]
